FAERS Safety Report 15152499 (Version 1)
Quarter: 2018Q3

REPORT INFORMATION
  Report Type: Spontaneous
  Country: ES (occurrence: ES)
  Receive Date: 20180717
  Receipt Date: 20180717
  Transmission Date: 20181010
  Serious: Yes (Other)
  Sender: FDA-Public Use
  Company Number: ES-TEVA-2018-ES-927839

PATIENT
  Age: 22 Year
  Sex: Male
  Weight: 83 kg

DRUGS (1)
  1. AMOXICILINA/?CIDO CLAVUL?NICO 875 MG/125 MG 30 COMPRIMIDOS [Suspect]
     Active Substance: AMOXICILLIN\CLAVULANIC ACID
     Indication: LYMPHADENOPATHY
     Route: 048
     Dates: start: 20180619, end: 20180619

REACTIONS (2)
  - Pharyngeal oedema [Recovered/Resolved]
  - Palatal oedema [Recovered/Resolved]

NARRATIVE: CASE EVENT DATE: 20180619
